FAERS Safety Report 6824128-1 (Version None)
Quarter: 2010Q3

REPORT INFORMATION
  Report Type: 
  Country: None (occurrence: None)
  Receive Date: 20100708
  Receipt Date: 20061004
  Transmission Date: 20110219
  Serious: No
  Sender: FDA-Public Use
  Company Number: US-PFIZER INC-2006120379

PATIENT
  Sex: Female

DRUGS (11)
  1. CHANTIX [Suspect]
     Indication: EX-TOBACCO USER
     Dates: start: 20060901
  2. SOMA [Concomitant]
  3. ADVAIR DISKUS 100/50 [Concomitant]
  4. DUONEB [Concomitant]
  5. ALBUTEROL [Concomitant]
  6. COMBIVENT [Concomitant]
  7. LIPITOR [Concomitant]
  8. EFFEXOR XR [Concomitant]
  9. SPIRONOLACTONE W/ HYDROCHLOROTHIAZIDE [Concomitant]
  10. GEODON [Concomitant]
  11. QUININE SULFATE [Concomitant]

REACTIONS (4)
  - ABNORMAL DREAMS [None]
  - HEADACHE [None]
  - INSOMNIA [None]
  - WEIGHT INCREASED [None]
